FAERS Safety Report 8572990-7 (Version None)
Quarter: 2012Q3

REPORT INFORMATION
  Report Type: 
  Country: None (occurrence: None)
  Receive Date: 20120806
  Receipt Date: 20120801
  Transmission Date: 20120928
  Serious: Yes (Hospitalization)
  Sender: FDA-Public Use
  Company Number: FR-PFIZER INC-2012186281

PATIENT
  Age: 63 Year
  Sex: Male

DRUGS (6)
  1. AMLODIPINE BESYLATE [Concomitant]
     Dosage: 1 DF, 1X/DAY
     Route: 048
  2. ALDACTONE [Suspect]
     Indication: ASCITES
     Dosage: 1 DF, 1X/DAY
     Route: 048
     Dates: start: 20120702, end: 20120718
  3. BARACLUDE [Concomitant]
     Dosage: 1 DF, 1X/DAY
     Route: 048
  4. PROPRANOLOL [Concomitant]
     Dosage: 1 DF, 1X/DAY
     Route: 048
  5. ASPIRIN [Concomitant]
     Dosage: 1 DF, 1X/DAY
     Route: 048
  6. CANDESARTAN CILEXETIL AND HYDROCHLOROTHIAZIDE [Interacting]
     Dosage: 1 DF, 1X/DAY
     Route: 048
     Dates: end: 20120718

REACTIONS (2)
  - RENAL FAILURE ACUTE [None]
  - DRUG INTERACTION [None]
